FAERS Safety Report 16195440 (Version 1)
Quarter: 2019Q2

REPORT INFORMATION
  Report Type: Report from Study
  Country: ES (occurrence: ES)
  Receive Date: 20190415
  Receipt Date: 20190415
  Transmission Date: 20190711
  Serious: Yes (Death, Other)
  Sender: FDA-Public Use
  Company Number: ES-ROCHE-2298931

PATIENT

DRUGS (3)
  1. TRASTUZUMAB. [Suspect]
     Active Substance: TRASTUZUMAB
     Route: 042
  2. VINORELBINE [Suspect]
     Active Substance: VINORELBINE\VINORELBINE TARTRATE
     Indication: BREAST CANCER METASTATIC
     Dosage: ON DAY 1 EVERY 7 DAYS, OR ON DAY 1, 8 AND 15 EVERY 28 DAYS
     Route: 048
  3. TRASTUZUMAB. [Suspect]
     Active Substance: TRASTUZUMAB
     Indication: BREAST CANCER METASTATIC
     Route: 042

REACTIONS (7)
  - Febrile neutropenia [Fatal]
  - Ileus paralytic [Recovered/Resolved]
  - Varicella zoster oesophagitis [Unknown]
  - Pain [Unknown]
  - Constipation [Unknown]
  - Neutropenia [Unknown]
  - Leukopenia [Unknown]
